FAERS Safety Report 24279158 (Version 6)
Quarter: 2025Q2

REPORT INFORMATION
  Report Type: Spontaneous
  Country: US (occurrence: US)
  Receive Date: 20240903
  Receipt Date: 20250501
  Transmission Date: 20250717
  Serious: Yes (Hospitalization)
  Sender: PFIZER
  Company Number: US-PFIZER INC-PV202400114255

PATIENT
  Age: 78 Year
  Sex: Male

DRUGS (2)
  1. XELJANZ [Suspect]
     Active Substance: TOFACITINIB CITRATE
     Indication: Rheumatoid arthritis
     Dosage: 5 MG, 2X/DAY
     Route: 048
  2. XELJANZ [Suspect]
     Active Substance: TOFACITINIB CITRATE
     Dosage: 5 MG, 2X/DAY
     Route: 048
     Dates: end: 20250310

REACTIONS (9)
  - Neoplasm malignant [Unknown]
  - Laryngectomy [Unknown]
  - Product dose omission issue [Unknown]
  - Latent tuberculosis [Unknown]
  - Pain in extremity [Not Recovered/Not Resolved]
  - Dysphagia [Unknown]
  - Speech disorder [Unknown]
  - Gastrointestinal tube insertion [Unknown]
  - Incision site complication [Unknown]

NARRATIVE: CASE EVENT DATE: 20250310
